FAERS Safety Report 8822916 (Version 1)
Quarter: 2012Q4

REPORT INFORMATION
  Report Type: 
  Country: FR (occurrence: FR)
  Receive Date: 20121003
  Receipt Date: 20121003
  Transmission Date: 20130627
  Serious: Yes (Other)
  Sender: FDA-Public Use
  Company Number: PHHY2012FR084911

PATIENT

DRUGS (1)
  1. RITALINE [Suspect]

REACTIONS (1)
  - Drug withdrawal syndrome [Unknown]
